FAERS Safety Report 23793059 (Version 1)
Quarter: 2024Q2

REPORT INFORMATION
  Report Type: Spontaneous
  Country: US (occurrence: US)
  Receive Date: 20240429
  Receipt Date: 20240429
  Transmission Date: 20240716
  Serious: Yes (Hospitalization)
  Sender: FDA-Public Use
  Company Number: US-DRL-USA-LIT/USA/24/0006292

PATIENT
  Age: 63 Year
  Sex: Male

DRUGS (2)
  1. TIZANIDINE [Suspect]
     Active Substance: TIZANIDINE
     Indication: Neuromyotonia
  2. GABAPENTIN [Concomitant]
     Active Substance: GABAPENTIN
     Indication: Neuromyotonia

REACTIONS (1)
  - Drug ineffective for unapproved indication [Unknown]
